FAERS Safety Report 6354835-9 (Version None)
Quarter: 2009Q3

REPORT INFORMATION
  Report Type: 
  Country: None (occurrence: None)
  Receive Date: 20090914
  Receipt Date: 20090901
  Transmission Date: 20100115
  Serious: Yes (Hospitalization)
  Sender: FDA-Public Use
  Company Number: FR-JNJFOC-20090903968

PATIENT
  Age: 80 Year
  Sex: Female

DRUGS (2)
  1. IXPRIM [Suspect]
     Indication: DRUG USE FOR UNKNOWN INDICATION
     Route: 048
     Dates: start: 20090201, end: 20090301
  2. AUGMENTIN [Suspect]
     Indication: DRUG USE FOR UNKNOWN INDICATION
     Dosage: 1000 MG PLUS 200 MG
     Route: 058
     Dates: start: 20090201, end: 20090301

REACTIONS (1)
  - HEPATITIS CHOLESTATIC [None]
